FAERS Safety Report 17539462 (Version 14)
Quarter: 2021Q3

REPORT INFORMATION
  Report Type: Spontaneous
  Country: US (occurrence: US)
  Receive Date: 20200313
  Receipt Date: 20210924
  Transmission Date: 20211014
  Serious: Yes (Other)
  Sender: FDA-Public Use
  Company Number: US-PFIZER INC-2020109200

PATIENT
  Age: 77 Year
  Sex: Female
  Weight: 60.78 kg

DRUGS (7)
  1. LYRICA [Suspect]
     Active Substance: PREGABALIN
     Indication: PAIN
     Dosage: 75 MG, DAILY (ONE 25 MG CAPSULE IN THE MORNING, TWO 25 MG CAPSULE IN THE EVENING)
     Route: 048
  2. LYRICA [Suspect]
     Active Substance: PREGABALIN
     Dosage: 125 MG, DAILY (TWO 25 MG CAPSULES IN THE MORNING AND THREE 25 MG CAPSULES IN THE AFTERNOON)
  3. PREDNISONE. [Concomitant]
     Active Substance: PREDNISONE
     Dosage: 5 DF, DAILY (TAKING 5 A DAY)
  4. LYRICA [Suspect]
     Active Substance: PREGABALIN
     Indication: AUTOIMMUNE DISORDER
     Dosage: UNK (HAD TO TAKE LESS THAN THE 4 TIMES DAILY)
     Route: 048
  5. PREDNISONE. [Concomitant]
     Active Substance: PREDNISONE
     Dosage: 5 DF, ALTERNATE DAY (EVERY OTHER DAY)
  6. PREDNISONE. [Concomitant]
     Active Substance: PREDNISONE
     Dosage: 15 MG, DAILY
  7. PREDNISONE. [Concomitant]
     Active Substance: PREDNISONE
     Dosage: 3 DF, DAILY

REACTIONS (26)
  - Autophobia [Unknown]
  - Dizziness [Unknown]
  - Pain in extremity [Unknown]
  - Condition aggravated [Unknown]
  - Therapeutic product effect incomplete [Unknown]
  - Fatigue [Unknown]
  - Gait disturbance [Unknown]
  - Lethargy [Unknown]
  - Body height decreased [Unknown]
  - Malaise [Unknown]
  - Vasculitis [Unknown]
  - Intentional product misuse [Unknown]
  - Weight decreased [Unknown]
  - Anaemia [Unknown]
  - Cough [Unknown]
  - Illness [Unknown]
  - Hunger [Unknown]
  - Mental disorder [Unknown]
  - Pneumonia [Unknown]
  - General physical health deterioration [Unknown]
  - Autoimmune disorder [Unknown]
  - Joint range of motion decreased [Unknown]
  - Fall [Unknown]
  - Thinking abnormal [Unknown]
  - Memory impairment [Unknown]
  - Dyspnoea [Not Recovered/Not Resolved]

NARRATIVE: CASE EVENT DATE: 202012
